FAERS Safety Report 6643207-5 (Version None)
Quarter: 2010Q1

REPORT INFORMATION
  Report Type: 
  Country: None (occurrence: None)
  Receive Date: 20100319
  Receipt Date: 20100315
  Transmission Date: 20100710
  Serious: Yes (Death)
  Sender: FDA-Public Use
  Company Number: PHEH2010US00733

PATIENT
  Sex: Male

DRUGS (18)
  1. GLEEVEC [Suspect]
     Indication: CHRONIC MYELOID LEUKAEMIA
     Dosage: 400 MG, Q 3RD DAY
     Route: 048
  2. DIGOXIN [Concomitant]
     Dosage: 1/2 62.5 MG TABLET DAILY
  3. DOCUSATE SODIUM [Concomitant]
     Dosage: 100 MG, UNK
  4. ENALAPRIL MALEATE [Concomitant]
     Dosage: 5 MG, UNK
  5. FEXOFENADINE [Concomitant]
     Dosage: 180 MG, QHS
  6. FUROSEMIDE [Concomitant]
     Dosage: 20 MG, UNK
  7. LEVOTHYROXINE SODIUM [Concomitant]
  8. NIFEREX (POLYSACCHARIDE-IRON COMPLEX) [Concomitant]
     Dosage: 150 MG, UNK
  9. SUCRALFATE [Concomitant]
  10. VERAPAMIL [Concomitant]
  11. POTASSIUM [Concomitant]
     Dosage: 20 MG, UNK
  12. PRILOSEC [Concomitant]
     Dosage: 20 MG, QD
  13. MULTI-VITAMINS [Concomitant]
  14. ASPIRIN [Concomitant]
  15. ARTIFICIAL TEARS [Concomitant]
  16. TYLENOL-500 [Concomitant]
     Dosage: UNK
  17. ROBITUSSIN ^ROBINS^ [Concomitant]
     Dosage: UNK
  18. MILK OF MAGNESIA TAB [Concomitant]

REACTIONS (2)
  - HYPOXIA [None]
  - PNEUMONIA [None]
